FAERS Safety Report 7961696-0 (Version None)
Quarter: 2011Q4

REPORT INFORMATION
  Report Type: 
  Country: None (occurrence: None)
  Receive Date: 20111207
  Receipt Date: 20110921
  Transmission Date: 20120403
  Serious: Yes (Other)
  Sender: FDA-Public Use
  Company Number: PHHY2011BR86860

PATIENT
  Age: 64 Year
  Sex: Male

DRUGS (4)
  1. HYDROCHLOROTHIAZIDE [Concomitant]
     Dosage: 25 MG, UNK
  2. ATENOLOL [Suspect]
  3. LOSARTAN POTASSIUM [Concomitant]
     Dosage: 100 MG, UNK
  4. AMLODIPINE BES.W/HYDROCHLOROTHIAZID/VALSARTAN [Concomitant]

REACTIONS (2)
  - BLOOD PRESSURE INCREASED [None]
  - MICROALBUMINURIA [None]
